FAERS Safety Report 18241547 (Version 1)
Quarter: 2020Q3

REPORT INFORMATION
  Report Type: Spontaneous
  Country: US (occurrence: US)
  Receive Date: 20200908
  Receipt Date: 20200908
  Transmission Date: 20201103
  Serious: No
  Sender: FDA-Public Use
  Company Number: US-GLENMARK PHARMACEUTICALS-2020GMK046676

PATIENT

DRUGS (1)
  1. TROSPIUM CHLORIDE TABLETS [Suspect]
     Active Substance: TROSPIUM CHLORIDE
     Indication: POLLAKIURIA
     Dosage: 20 MILLIGRAM, OD
     Route: 048
     Dates: start: 202003

REACTIONS (2)
  - Product prescribing issue [Unknown]
  - Drug ineffective [Unknown]

NARRATIVE: CASE EVENT DATE: 202003
